FAERS Safety Report 16895456 (Version 2)
Quarter: 2019Q4

REPORT INFORMATION
  Report Type: Spontaneous
  Country: ES (occurrence: ES)
  Receive Date: 20191008
  Receipt Date: 20191016
  Transmission Date: 20200122
  Serious: Yes (Other)
  Sender: FDA-Public Use
  Company Number: ES-PFIZER INC-2019427253

PATIENT
  Age: 60 Year
  Sex: Female

DRUGS (5)
  1. PREDNISONE. [Suspect]
     Active Substance: PREDNISONE
     Indication: B-CELL LYMPHOMA STAGE III
     Dosage: 60 MG/M2, CYCLIC (DAYS 1 TO 5, EVERY 21 DAYS FOR A TOTAL OF 8 CYCLES))
     Route: 048
  2. RITUXIMAB. [Suspect]
     Active Substance: RITUXIMAB
     Indication: B-CELL LYMPHOMA STAGE III
     Dosage: 375 MG/M2, CYCLIC ( D1, EVERY 21 DAYS FOR A TOTAL OF 8 CYCLES)
  3. CYCLOPHOSPHAMIDE. [Suspect]
     Active Substance: CYCLOPHOSPHAMIDE
     Indication: B-CELL LYMPHOMA STAGE III
     Dosage: 750 MG/M2, CYCLIC (D1, EVERY 21 DAYS FOR A TOTAL OF 8 CYCLES)
     Route: 042
  4. VINCRISTINE SULFATE. [Suspect]
     Active Substance: VINCRISTINE SULFATE
     Indication: B-CELL LYMPHOMA STAGE III
     Dosage: 2 MG, CYCLIC (D1 EVERY 21 DAYS FOR A TOTAL OF 8 CYCLES )
     Route: 042
  5. LAMIVUDINE. [Concomitant]
     Active Substance: LAMIVUDINE
     Indication: PROPHYLAXIS
     Dosage: 100 MG, DAILY
     Route: 048

REACTIONS (2)
  - Urinary tract infection [Unknown]
  - Hepatitis B reactivation [Unknown]
